FAERS Safety Report 7070892-9 (Version None)
Quarter: 2010Q4

REPORT INFORMATION
  Report Type: 
  Country: None (occurrence: None)
  Receive Date: 20101027
  Receipt Date: 20101027
  Transmission Date: 20110411
  Serious: Yes (Other)
  Sender: FDA-Public Use
  Company Number: None

PATIENT
  Age: 49 Year
  Sex: Female
  Weight: 53.0709 kg

DRUGS (1)
  1. SUDAFED PE 4 HR JOHNSON + JOHNSON [Suspect]
     Indication: MULTIPLE ALLERGIES
     Dosage: 1 PILL 1 A DAY
     Dates: start: 20101012, end: 20101020

REACTIONS (4)
  - ADVERSE DRUG REACTION [None]
  - PRODUCT QUALITY ISSUE [None]
  - PRURITUS [None]
  - URTICARIA [None]
